FAERS Safety Report 17362431 (Version 1)
Quarter: 2020Q1

REPORT INFORMATION
  Report Type: Spontaneous
  Country: US (occurrence: US)
  Receive Date: 20200203
  Receipt Date: 20200203
  Transmission Date: 20200409
  Serious: No
  Sender: FDA-Public Use
  Company Number: US-LEXICON PHARMACEUTICALS, INC-20-1606-00059

PATIENT
  Sex: Male

DRUGS (11)
  1. XERMELO [Suspect]
     Active Substance: TELOTRISTAT ETHYL
     Indication: CARCINOID SYNDROME
     Dates: start: 20170902
  2. XELODA [Concomitant]
     Active Substance: CAPECITABINE
  3. VITAMIN D [Concomitant]
     Active Substance: VITAMIN D NOS
  4. SAVAYSA [Concomitant]
     Active Substance: EDOXABAN TOSYLATE
  5. TEMODAR [Concomitant]
     Active Substance: TEMOZOLOMIDE
  6. FLONASE [Concomitant]
     Active Substance: FLUTICASONE PROPIONATE
  7. HYDROCHLOROTHIAZIDE. [Concomitant]
     Active Substance: HYDROCHLOROTHIAZIDE
  8. SANDOSTATIN [Concomitant]
     Active Substance: OCTREOTIDE ACETATE
  9. PROTONIX [Concomitant]
     Active Substance: PANTOPRAZOLE SODIUM
  10. LOVENOX [Concomitant]
     Active Substance: ENOXAPARIN SODIUM
  11. LISINOPRIL. [Concomitant]
     Active Substance: LISINOPRIL

REACTIONS (2)
  - Limb discomfort [Unknown]
  - Arthralgia [Unknown]
